FAERS Safety Report 24451754 (Version 1)
Quarter: 2024Q4

REPORT INFORMATION
  Report Type: Spontaneous
  Country: FR (occurrence: FR)
  Receive Date: 20241017
  Receipt Date: 20241017
  Transmission Date: 20250114
  Serious: Yes (Hospitalization)
  Sender: TEVA
  Company Number: None

PATIENT
  Age: 72 Year
  Sex: Female

DRUGS (2)
  1. OCTREOTIDE [Suspect]
     Active Substance: OCTREOTIDE
     Indication: Distal intestinal obstruction syndrome
     Route: 042
     Dates: start: 20240914, end: 20240915
  2. MORPHINE [Suspect]
     Active Substance: MORPHINE
     Indication: Distal intestinal obstruction syndrome
     Route: 042
     Dates: start: 20240914, end: 20240915

REACTIONS (2)
  - Asthenia [Recovered/Resolved]
  - Wrong rate [Recovered/Resolved]

NARRATIVE: CASE EVENT DATE: 20240915
